FAERS Safety Report 13176419 (Version 1)
Quarter: 2017Q1

REPORT INFORMATION
  Report Type: Spontaneous
  Country: SE (occurrence: SE)
  Receive Date: 20170201
  Receipt Date: 20170201
  Transmission Date: 20170428
  Serious: Yes (Hospitalization)
  Sender: FDA-Public Use
  Company Number: SE-INGENUS PHARMACEUTICALS NJ, LLC-ING201701-000036

PATIENT
  Age: 60 Year
  Sex: Male

DRUGS (3)
  1. CARISOPRODOL AND ASPIRIN [Suspect]
     Active Substance: ASPIRIN\CARISOPRODOL
  2. LOW MOLECULAR WEIGHT HEPARIN [Suspect]
     Active Substance: UNSPECIFIED INGREDIENT
  3. COUMADIN [Suspect]
     Active Substance: WARFARIN SODIUM

REACTIONS (3)
  - Epistaxis [Unknown]
  - Subarachnoid haemorrhage [Unknown]
  - Platelet dysfunction [Unknown]
